FAERS Safety Report 8695113 (Version 2)
Quarter: 2013Q2

REPORT INFORMATION
  Report Type: Spontaneous
  Country: US (occurrence: US)
  Receive Date: 20120731
  Receipt Date: 20130506
  Transmission Date: 20140414
  Serious: Yes (Other)
  Sender: FDA-Public Use
  Company Number: US-ROCHE-1089595

PATIENT
  Sex: Male

DRUGS (4)
  1. ACCUTANE [Suspect]
     Indication: PRODUCT USED FOR UNKNOWN INDICATION
     Route: 065
     Dates: start: 20010810
  2. ACCUTANE [Suspect]
     Route: 065
     Dates: start: 200206, end: 200507
  3. ACCUTANE [Suspect]
     Route: 065
     Dates: start: 20070821
  4. AMNESTEEM [Suspect]
     Indication: PRODUCT USED FOR UNKNOWN INDICATION
     Route: 065
     Dates: start: 200508, end: 200903

REACTIONS (18)
  - Colitis ulcerative [Unknown]
  - Crohn^s disease [Unknown]
  - Inflammatory bowel disease [Unknown]
  - Depression [Unknown]
  - Irritable bowel syndrome [Unknown]
  - Cervical radiculopathy [Unknown]
  - Coronary artery disease [Unknown]
  - Rhinitis allergic [Unknown]
  - Bronchitis [Unknown]
  - Hypoaesthesia [Unknown]
  - Hypoaesthesia [Unknown]
  - Hypertension [Unknown]
  - Microalbuminuria [Unknown]
  - Renal failure chronic [Unknown]
  - Type 2 diabetes mellitus [Unknown]
  - Spinal osteoarthritis [Unknown]
  - Erectile dysfunction [Unknown]
  - Intervertebral disc displacement [Unknown]
